FAERS Safety Report 25088529 (Version 1)
Quarter: 2025Q1

REPORT INFORMATION
  Report Type: Spontaneous
  Country: US (occurrence: US)
  Receive Date: 20250318
  Receipt Date: 20250318
  Transmission Date: 20250409
  Serious: No
  Sender: BRISTOL-MYERS SQUIBB COMPANY
  Company Number: US-BRISTOL-MYERS SQUIBB COMPANY-2025-034633

PATIENT
  Age: 53 Year
  Sex: Female

DRUGS (1)
  1. ZEPOSIA [Suspect]
     Active Substance: OZANIMOD HYDROCHLORIDE
     Indication: Multiple sclerosis
     Route: 048

REACTIONS (8)
  - Menopausal symptoms [Unknown]
  - Hot flush [Unknown]
  - Fatigue [Unknown]
  - Burning sensation [Unknown]
  - Product dose omission issue [Unknown]
  - White blood cell count decreased [Unknown]
  - Pollakiuria [Unknown]
  - Irritability [Unknown]

NARRATIVE: CASE EVENT DATE: 20250201
